FAERS Safety Report 5960835-0 (Version None)
Quarter: 2008Q4

REPORT INFORMATION
  Report Type: 
  Country: None (occurrence: None)
  Receive Date: 20081112
  Receipt Date: 20080610
  Transmission Date: 20090506
  Serious: Yes (Hospitalization)
  Sender: FDA-Public Use
  Company Number: 2008S1000204

PATIENT
  Age: 72 Year
  Sex: Female
  Weight: 76.6 kg

DRUGS (22)
  1. CUBICIN [Suspect]
     Indication: ARTHRITIS INFECTIVE
     Dosage: 6 MG/KG; Q24H; IV
     Route: 042
     Dates: start: 20080516
  2. PEPCID [Concomitant]
  3. SENNA ALEXANDRINA [Concomitant]
  4. COUMADIN [Concomitant]
  5. FLUVASTATIN [Concomitant]
  6. GLIMEPIRIDE [Concomitant]
  7. METFORMIN HCL [Concomitant]
  8. ATENOLOL [Concomitant]
  9. SORBITOL [Concomitant]
  10. VITAMIN K TAB [Concomitant]
  11. PREDNISONE TAB [Concomitant]
  12. DIPHENHYDRAMINE HYDROCHLORIDE [Concomitant]
  13. PROMETHAZINE [Concomitant]
  14. TYLENOL (CAPLET) [Concomitant]
  15. BISACODYL [Concomitant]
  16. AMBIEN [Concomitant]
  17. NORCO [Concomitant]
  18. HYDROMORPHONE HYDROCHLORIDE [Concomitant]
  19. METAXALONE [Concomitant]
  20. CLONIDINE [Concomitant]
  21. NYSTATIN [Concomitant]
  22. MUPIROCIN [Concomitant]

REACTIONS (3)
  - DISLOCATION OF JOINT PROSTHESIS [None]
  - FEMUR FRACTURE [None]
  - SUBCUTANEOUS HAEMATOMA [None]
